FAERS Safety Report 12045994 (Version 5)
Quarter: 2017Q1

REPORT INFORMATION
  Report Type: Spontaneous
  Country: DE (occurrence: DE)
  Receive Date: 20160208
  Receipt Date: 20170329
  Transmission Date: 20170428
  Serious: Yes (Life-Threatening, Hospitalization, Other)
  Sender: FDA-Public Use
  Company Number: DE-AMGEN-DEUSP2016013917

PATIENT
  Age: 63 Year
  Sex: Male

DRUGS (14)
  1. DOXORUBICINE [Suspect]
     Active Substance: DOXORUBICIN
     Indication: B-CELL LYMPHOMA
     Dosage: 94.5 MG, QD, 1 IN 1 D
     Route: 042
     Dates: start: 20160122, end: 20160122
  2. VINCRISTINE [Suspect]
     Active Substance: VINCRISTINE
     Indication: B-CELL LYMPHOMA
     Dosage: 2 MG, QD, 1 IN 1 D
     Route: 042
     Dates: start: 20160126, end: 20160126
  3. PREDNISOLONE. [Suspect]
     Active Substance: PREDNISOLONE
     Indication: B-CELL LYMPHOMA
     Dosage: 100 MG, QD, 1 IN 1 D
     Route: 042
     Dates: start: 20160122, end: 20160126
  4. GLYCEROL [Concomitant]
     Active Substance: GLYCERIN
     Indication: PROPHYLAXIS
     Dosage: UNK UNK, 1 TIMES A DAY(S)
     Route: 047
  5. TIMOLOLI MALEAS [Concomitant]
     Indication: PROPHYLAXIS
     Dosage: UNK UNK, 1 TIMES A DAY(S)
     Route: 047
  6. RITUXIMAB [Suspect]
     Active Substance: RITUXIMAB
     Indication: B-CELL LYMPHOMA
     Dosage: 708.75 MG, QD, 1 IN 1 D
     Route: 042
     Dates: start: 20160121, end: 20160121
  7. CARVEDILOL. [Concomitant]
     Active Substance: CARVEDILOL
     Indication: HYPERTENSION
     Dosage: UNK, 2X 0.5/D
     Route: 048
  8. TRAVOPROSTUM [Concomitant]
     Indication: PROPHYLAXIS
     Dosage: UNK
  9. ENOXAPARIN SODIUM. [Concomitant]
     Active Substance: ENOXAPARIN SODIUM
     Indication: PROPHYLAXIS
     Dosage: 4 MG, QD, 1 IN 1 D
     Dates: start: 201601
  10. CYCLOPHOSPHAMIDE. [Suspect]
     Active Substance: CYCLOPHOSPHAMIDE
     Indication: B-CELL LYMPHOMA
     Dosage: 1417.5 MG, QD, 1 IN 1 D
     Route: 042
     Dates: start: 20160122, end: 20160122
  11. PEGFILGRASTIM [Suspect]
     Active Substance: PEGFILGRASTIM
     Indication: B-CELL LYMPHOMA
     Dosage: 6 MG, QD (1 IN 1 D)
     Route: 058
     Dates: start: 20160125, end: 20160125
  12. MAGNESIUM OXIDE. [Concomitant]
     Active Substance: MAGNESIUM OXIDE
     Indication: PROPHYLAXIS
     Dosage: 150 MG, QD, 1 IN 1 D
     Route: 048
  13. ALLOPURINOL. [Concomitant]
     Active Substance: ALLOPURINOL
     Indication: PROPHYLAXIS
     Dosage: UNK
  14. PANTOPRAZOLE [Concomitant]
     Active Substance: PANTOPRAZOLE SODIUM
     Dosage: 40 MG, QD, 1 IN 1 D
     Route: 048
     Dates: start: 20160121

REACTIONS (1)
  - Neutropenia [Recovered/Resolved]

NARRATIVE: CASE EVENT DATE: 20160131
